FAERS Safety Report 7035684-5 (Version None)
Quarter: 2010Q4

REPORT INFORMATION
  Report Type: 
  Country: None (occurrence: None)
  Receive Date: 20101008
  Receipt Date: 20101005
  Transmission Date: 20110411
  Serious: Yes (Other)
  Sender: FDA-Public Use
  Company Number: US-PFIZER INC-2010076445

PATIENT
  Sex: Female
  Weight: 84 kg

DRUGS (27)
  1. CHANTIX [Interacting]
     Indication: SMOKING CESSATION THERAPY
     Dosage: FREQUENCY: 2X/DAY,
     Route: 048
     Dates: start: 20090601
  2. CHANTIX [Interacting]
     Dosage: 0.5 MG, 1X/DAY
     Route: 048
     Dates: start: 20100825
  3. ZOLOFT [Interacting]
     Indication: DEPRESSION
     Dosage: UNK
  4. ZOLOFT [Interacting]
     Indication: ATTENTION DEFICIT/HYPERACTIVITY DISORDER
  5. VISTARIL [Interacting]
     Indication: ANXIETY
     Dosage: UNK
  6. LYRICA [Suspect]
     Indication: MUSCLE SPASMS
     Dosage: UNK MG, UNK
     Route: 048
     Dates: start: 20100901, end: 20100901
  7. BUSPAR [Interacting]
     Indication: ANXIETY
     Dosage: UNK
  8. NICOTROL [Concomitant]
     Indication: SMOKING CESSATION THERAPY
     Route: 048
     Dates: start: 20090501, end: 20090101
  9. ASTHALIN [Concomitant]
     Indication: HYPERSENSITIVITY
     Dosage: UNK
  10. RELPAX [Concomitant]
     Indication: MIGRAINE
     Dosage: 40 MG, AS NEEDED
     Route: 048
  11. RELPAX [Concomitant]
     Indication: HEADACHE
  12. QUININE [Concomitant]
     Indication: MUSCLE SPASMS
     Dosage: 324 MG, AS NEEDED
  13. REQUIP [Concomitant]
     Indication: MUSCLE SPASMS
     Dosage: 1 MG, 2X/DAY
     Route: 048
  14. REQUIP [Concomitant]
     Indication: RESTLESS LEGS SYNDROME
  15. NEXIUM [Concomitant]
     Indication: ABDOMINAL DISCOMFORT
     Dosage: 40 MG, 1X/DAY
     Route: 048
  16. REGLAN [Concomitant]
     Indication: GASTRIC DISORDER
     Dosage: 10 MG, 3X/DAY
     Route: 048
  17. FLEXERIL [Concomitant]
     Indication: MUSCLE RELAXANT THERAPY
     Dosage: 10 MG, 3X/DAY
  18. ROBAXIN [Concomitant]
     Indication: MUSCLE RELAXANT THERAPY
     Dosage: 750 MG, 3X/DAY
     Route: 048
  19. TRAZODONE [Concomitant]
     Indication: SLEEP DISORDER
     Dosage: 100 MG, 1X/DAY
     Route: 048
  20. NEURONTIN [Concomitant]
     Indication: NEURALGIA
     Dosage: 800 MG, 3X/DAY
     Route: 048
  21. NEURONTIN [Concomitant]
     Indication: NERVE INJURY
  22. IBANDRONATE SODIUM [Concomitant]
     Indication: OSTEOPOROSIS
     Dosage: 150 MG, MONTHLY
     Route: 048
  23. OXYCONTIN [Concomitant]
     Indication: PAIN
     Dosage: 20 MG, 2X/DAY
     Route: 048
  24. ASTELIN [Concomitant]
     Indication: HYPERSENSITIVITY
     Dosage: UNK
     Route: 045
  25. ZOLOFT [Concomitant]
     Dosage: 50 MG, 1X/DAY
     Route: 048
  26. NORCO [Concomitant]
     Indication: PAIN
     Dosage: 10/325
     Route: 048
  27. QUININE SULFATE [Concomitant]
     Indication: MUSCLE SPASMS
     Dosage: 324 MG, AS NEEDED
     Route: 048

REACTIONS (7)
  - AGITATION [None]
  - CHEST DISCOMFORT [None]
  - DEPRESSED MOOD [None]
  - DRUG INTERACTION [None]
  - FALL [None]
  - MUSCLE SPASMS [None]
  - TOBACCO WITHDRAWAL SYMPTOMS [None]
